FAERS Safety Report 19205872 (Version 3)
Quarter: 2021Q4

REPORT INFORMATION
  Report Type: Report from Study
  Country: CA (occurrence: CA)
  Receive Date: 20210503
  Receipt Date: 20211207
  Transmission Date: 20220303
  Serious: Yes (Other)
  Sender: FDA-Public Use
  Company Number: NVSC2021CA003629

PATIENT
  Sex: Female

DRUGS (3)
  1. ILARIS [Suspect]
     Active Substance: CANAKINUMAB
     Indication: Familial mediterranean fever
     Dosage: 150 MG, 4 WEEKS
     Route: 058
     Dates: start: 20210415
  2. COLCHICINE [Suspect]
     Active Substance: COLCHICINE
     Indication: Product used for unknown indication
     Dosage: UNK, BID
     Route: 065
  3. AZATHIOPRINE [Concomitant]
     Active Substance: AZATHIOPRINE
     Indication: Product used for unknown indication
     Dosage: UNK
     Route: 065

REACTIONS (15)
  - Ill-defined disorder [Unknown]
  - Arthritis [Unknown]
  - Serositis [Unknown]
  - Pleurisy [Unknown]
  - Pyrexia [Unknown]
  - Rash [Recovering/Resolving]
  - Serum amyloid A protein increased [Unknown]
  - Pain [Unknown]
  - Fatigue [Unknown]
  - Tuberculin test positive [Unknown]
  - Abdominal pain [Unknown]
  - Erythema [Recovering/Resolving]
  - Pruritus [Recovering/Resolving]
  - Drug intolerance [Unknown]
  - Inappropriate schedule of product administration [Unknown]

NARRATIVE: CASE EVENT DATE: 20210101
